FAERS Safety Report 18716430 (Version 1)
Quarter: 2021Q1

REPORT INFORMATION
  Report Type: Spontaneous
  Country: US (occurrence: US)
  Receive Date: 20210108
  Receipt Date: 20210108
  Transmission Date: 20210419
  Serious: Yes (Other)
  Sender: FDA-Public Use
  Company Number: US-STRIDES ARCOLAB LIMITED-2021SP000268

PATIENT
  Age: 42 Year
  Sex: Male

DRUGS (1)
  1. IBUPROFEN. [Suspect]
     Active Substance: IBUPROFEN
     Indication: ARTHRALGIA
     Dosage: UNK
     Route: 065

REACTIONS (5)
  - Glomerulonephropathy [Recovered/Resolved]
  - Nephrotic syndrome [Recovered/Resolved]
  - Deep vein thrombosis [Unknown]
  - Acute kidney injury [Recovered/Resolved]
  - Lupus nephritis [Recovered/Resolved]
